FAERS Safety Report 5204260-9 (Version None)
Quarter: 2007Q1

REPORT INFORMATION
  Report Type: 
  Country: None (occurrence: None)
  Receive Date: 20070110
  Receipt Date: 20060125
  Transmission Date: 20070707
  Serious: No
  Sender: FDA-Public Use
  Company Number: US-BRISTOL-MYERS SQUIBB COMPANY-13260039

PATIENT
  Age: 54 Year
  Sex: Female

DRUGS (4)
  1. ABILIFY [Suspect]
     Indication: BIPOLAR DISORDER
     Dosage: ABILIFY: STARTED ON 2.5MG ON 22-OCT-2004; GRADUALLY TITRATED TO CURRENT DOSE OF 15MG DAILY.
     Dates: start: 20041022
  2. LAMICTAL [Concomitant]
  3. DEPAKOTE [Concomitant]
  4. NEURONTIN [Concomitant]

REACTIONS (1)
  - BLOOD GLUCOSE INCREASED [None]
